FAERS Safety Report 5952875-2 (Version None)
Quarter: 2008Q4

REPORT INFORMATION
  Report Type: 
  Country: None (occurrence: None)
  Receive Date: 20081114
  Receipt Date: 20081103
  Transmission Date: 20090506
  Serious: Yes (Other)
  Sender: FDA-Public Use
  Company Number: US-WYE-H04949908

PATIENT
  Sex: Female

DRUGS (1)
  1. PRISTIQ [Suspect]
     Indication: DEPRESSION
     Dosage: 50 MG, FREQUENCY UNKNOWN
     Route: 048

REACTIONS (4)
  - ACCOMMODATION DISORDER [None]
  - CONDITION AGGRAVATED [None]
  - MYDRIASIS [None]
  - VISUAL IMPAIRMENT [None]
